FAERS Safety Report 7401495-1 (Version None)
Quarter: 2011Q2

REPORT INFORMATION
  Report Type: 
  Country: None (occurrence: None)
  Receive Date: 20110408
  Receipt Date: 20110330
  Transmission Date: 20111010
  Serious: Yes (Death, Life-Threatening, Hospitalization)
  Sender: FDA-Public Use
  Company Number: DE-RANBAXY-2011RR-43497

PATIENT
  Age: 90 Year
  Sex: Female

DRUGS (10)
  1. DOMINAL [Suspect]
     Dosage: 40 MG, UNK
     Route: 048
     Dates: start: 20100409, end: 20100411
  2. METOPROLOL TARTRATE [Suspect]
     Dosage: 25 MG, UNK
     Route: 048
     Dates: start: 20100419, end: 20100420
  3. DOMINAL [Suspect]
     Dosage: 80 MG, UNK
     Route: 048
     Dates: start: 20100412, end: 20100420
  4. JONOSTERIL [Concomitant]
     Dosage: 1000 MG, UNK
     Route: 042
     Dates: start: 20100410, end: 20100420
  5. METOPROLOL TARTRATE [Concomitant]
     Dosage: 50 MG, UNK
     Route: 048
     Dates: start: 20100409, end: 20100418
  6. XIPAMID HEXAL 40MG [Concomitant]
     Dosage: 15 MG, UNK
     Route: 048
     Dates: start: 20100409
  7. XIPAMID HEXAL 40MG [Concomitant]
     Dosage: 15 MG, UNK
     Route: 048
     Dates: start: 20100413, end: 20100418
  8. XIPAMID HEXAL 40MG [Concomitant]
     Dosage: 5 MG, UNK
     Route: 048
     Dates: start: 20100419, end: 20100420
  9. METOPROLOL TARTRATE [Concomitant]
     Dosage: 100 MG, UNK
     Route: 046
     Dates: end: 20100408
  10. ALLOPURINOL [Concomitant]
     Dosage: 300 MG, UNK
     Route: 048

REACTIONS (2)
  - SUDDEN DEATH [None]
  - ELECTROCARDIOGRAM QT PROLONGED [None]
